FAERS Safety Report 11970108 (Version 1)
Quarter: 2016Q1

REPORT INFORMATION
  Report Type: Spontaneous
  Country: US (occurrence: US)
  Receive Date: 20160128
  Receipt Date: 20160128
  Transmission Date: 20160526
  Serious: Yes (Congenital Anomaly)
  Sender: FDA-Public Use
  Company Number: US-ROCHE-1701415

PATIENT
  Sex: Male

DRUGS (8)
  1. PERCOCET [Concomitant]
     Active Substance: ACETAMINOPHEN\OXYCODONE HYDROCHLORIDE
  2. VYVANSE [Concomitant]
     Active Substance: LISDEXAMFETAMINE DIMESYLATE
  3. DEPAKOTE [Concomitant]
     Active Substance: DIVALPROEX SODIUM
  4. LATUDA [Concomitant]
     Active Substance: LURASIDONE HYDROCHLORIDE
  5. OXYCODONE [Concomitant]
     Active Substance: OXYCODONE
  6. VALIUM [Suspect]
     Active Substance: DIAZEPAM
     Indication: PRODUCT USED FOR UNKNOWN INDICATION
     Route: 064
  7. OXYCONTIN [Concomitant]
     Active Substance: OXYCODONE HYDROCHLORIDE
  8. MS CONTIN [Concomitant]
     Active Substance: MORPHINE SULFATE
     Route: 065
     Dates: start: 2012

REACTIONS (4)
  - Foetal exposure during pregnancy [Unknown]
  - Ankyloglossia congenital [Unknown]
  - Palatal disorder [Unknown]
  - Craniosynostosis [Unknown]
